FAERS Safety Report 15306288 (Version 1)
Quarter: 2018Q3

REPORT INFORMATION
  Report Type: Spontaneous
  Country: US (occurrence: US)
  Receive Date: 20180822
  Receipt Date: 20180822
  Transmission Date: 20181010
  Serious: No
  Sender: FDA-Public Use
  Company Number: US-UNITED THERAPEUTICS-UNT-2018-012875

PATIENT
  Sex: Female
  Weight: 54.42 kg

DRUGS (3)
  1. VELETRI [Concomitant]
     Active Substance: EPOPROSTENOL
     Indication: PRODUCT USED FOR UNKNOWN INDICATION
     Route: 065
  2. TYVASO [Suspect]
     Active Substance: TREPROSTINIL
     Indication: PULMONARY ARTERIAL HYPERTENSION
     Dosage: 60?120 MICROGRAMS, QID
     Dates: start: 20180518
  3. TYVASO [Suspect]
     Active Substance: TREPROSTINIL
     Dosage: 18?108 MICROGRAMS, QID

REACTIONS (3)
  - Disease progression [Unknown]
  - Off label use [Unknown]
  - Defaecation urgency [Unknown]

NARRATIVE: CASE EVENT DATE: 2018
